FAERS Safety Report 23487132 (Version 1)
Quarter: 2024Q1

REPORT INFORMATION
  Report Type: Spontaneous
  Country: BR (occurrence: BR)
  Receive Date: 20240206
  Receipt Date: 20240206
  Transmission Date: 20240410
  Serious: Yes (Hospitalization)
  Sender: FDA-Public Use
  Company Number: BR-TEVA-VS-3150602

PATIENT
  Age: 9 Year
  Sex: Female

DRUGS (2)
  1. CARBOPLATIN [Suspect]
     Active Substance: CARBOPLATIN
     Indication: Neuroblastoma recurrent
     Route: 065
  2. ETOPOSIDE [Suspect]
     Active Substance: ETOPOSIDE
     Indication: Neuroblastoma recurrent
     Route: 065

REACTIONS (5)
  - Pancytopenia [Recovered/Resolved]
  - Impaired quality of life [Recovered/Resolved]
  - Stomatitis [Recovered/Resolved]
  - Malnutrition [Recovered/Resolved]
  - Weight decreased [Recovered/Resolved]
